FAERS Safety Report 25440453 (Version 2)
Quarter: 2025Q2

REPORT INFORMATION
  Report Type: Spontaneous
  Country: US (occurrence: US)
  Receive Date: 20250616
  Receipt Date: 20250620
  Transmission Date: 20250716
  Serious: No
  Sender: MYLAN
  Company Number: US-MYLANLABS-2025M1049270

PATIENT

DRUGS (1)
  1. ISOSULFAN BLUE [Suspect]
     Active Substance: ISOSULFAN BLUE
     Indication: Product used for unknown indication

REACTIONS (3)
  - Drug hypersensitivity [Unknown]
  - Infusion related reaction [Unknown]
  - Product quality issue [Unknown]
